FAERS Safety Report 16635084 (Version 1)
Quarter: 2019Q3

REPORT INFORMATION
  Report Type: Spontaneous
  Country: US (occurrence: US)
  Receive Date: 20190726
  Receipt Date: 20190726
  Transmission Date: 20191004
  Serious: Yes (Hospitalization, Other)
  Sender: FDA-Public Use
  Company Number: US-ASTELLAS-2019US030002

PATIENT
  Age: 44 Year
  Sex: Female

DRUGS (1)
  1. AMPHOTERICIN B, LIPOSOME [Suspect]
     Active Substance: AMPHOTERICIN B
     Indication: BLASTOMYCOSIS
     Dosage: UNK, UNKNOWN FREQ.
     Route: 065

REACTIONS (1)
  - Renal tubular necrosis [Unknown]
